FAERS Safety Report 15395783 (Version 1)
Quarter: 2018Q4

REPORT INFORMATION
  Report Type: Spontaneous
  Country: US (occurrence: US)
  Receive Date: 20180918
  Receipt Date: 20180918
  Transmission Date: 20190204
  Serious: No
  Sender: FDA-Public Use
  Company Number: US-GRANULES INDIA LIMITED-2055044

PATIENT
  Sex: Female

DRUGS (1)
  1. METHOCARBAMOL TABLETS, USP 500 MG [Suspect]
     Active Substance: METHOCARBAMOL
     Indication: PAIN IN EXTREMITY
     Route: 065
     Dates: start: 20180911

REACTIONS (3)
  - Nausea [Recovered/Resolved]
  - Palpitations [Recovered/Resolved]
  - Insomnia [Recovered/Resolved]

NARRATIVE: CASE EVENT DATE: 20180911
